FAERS Safety Report 13369861 (Version 1)
Quarter: 2017Q1

REPORT INFORMATION
  Report Type: Spontaneous
  Country: US (occurrence: US)
  Receive Date: 20170324
  Receipt Date: 20170324
  Transmission Date: 20170429
  Serious: No
  Sender: FDA-Public Use
  Company Number: US-ROCHE-1266295

PATIENT
  Sex: Male

DRUGS (10)
  1. XOLAIR [Suspect]
     Active Substance: OMALIZUMAB
     Indication: ASTHMA
     Route: 058
     Dates: start: 201308
  2. ASPIRIN. [Concomitant]
     Active Substance: ASPIRIN
  3. CLOTRIMAZOLE CREAM [Concomitant]
     Active Substance: CLOTRIMAZOLE
  4. LAMICTAL [Concomitant]
     Active Substance: LAMOTRIGINE
  5. TRAMADOL. [Concomitant]
     Active Substance: TRAMADOL
     Route: 065
  6. VERAMYST [Concomitant]
     Active Substance: FLUTICASONE FUROATE
  7. OMEPRAZOLE. [Concomitant]
     Active Substance: OMEPRAZOLE
  8. ASMANEX [Concomitant]
     Active Substance: MOMETASONE FUROATE
  9. ZYRTEC [Concomitant]
     Active Substance: CETIRIZINE HYDROCHLORIDE
  10. CLOBEX [Concomitant]
     Active Substance: CLOBETASOL PROPIONATE

REACTIONS (1)
  - Cough [Unknown]
